FAERS Safety Report 5640726-5 (Version None)
Quarter: 2008Q1

REPORT INFORMATION
  Report Type: 
  Country: None (occurrence: None)
  Receive Date: 20080131
  Receipt Date: 20071107
  Transmission Date: 20080703
  Serious: No
  Sender: FDA-Public Use
  Company Number: 163-21880-07110562

PATIENT
  Age: 80 Year
  Sex: Female

DRUGS (11)
  1. REVLIMID [Suspect]
     Indication: MYELODYSPLASTIC SYNDROME
     Dosage: 10-5MG, DAILY, ORAL ; MG, DAILY AT BEDTIME, ORAL
     Route: 048
     Dates: start: 20060210, end: 20070201
  2. REVLIMID [Suspect]
     Indication: MYELODYSPLASTIC SYNDROME
     Dosage: 10-5MG, DAILY, ORAL ; MG, DAILY AT BEDTIME, ORAL
     Route: 048
     Dates: start: 20070219
  3. ADVAIR DISKUS 100/50 [Concomitant]
  4. ACCUPRIL [Concomitant]
  5. LASIX [Concomitant]
  6. LIPITOR [Concomitant]
  7. ALLEGRA [Concomitant]
  8. CALCIUM (CALCIUM) [Concomitant]
  9. PAXIL [Concomitant]
  10. NEXIUM [Concomitant]
  11. POTASSIUM CHLORIDE [Concomitant]

REACTIONS (2)
  - CONTUSION [None]
  - HYPOAESTHESIA [None]
